FAERS Safety Report 7621210-6 (Version None)
Quarter: 2011Q3

REPORT INFORMATION
  Report Type: 
  Country: None (occurrence: None)
  Receive Date: 20110719
  Receipt Date: 20110711
  Transmission Date: 20111222
  Serious: Yes (Death, Hospitalization)
  Sender: FDA-Public Use
  Company Number: BR-US-EMD SERONO, INC.-7011225

PATIENT
  Sex: Female

DRUGS (3)
  1. REBIF [Suspect]
     Indication: RELAPSING-REMITTING MULTIPLE SCLEROSIS
     Route: 058
     Dates: start: 20030613, end: 20100625
  2. MORPHINE [Concomitant]
  3. ACETAMINOPHEN [Concomitant]

REACTIONS (6)
  - PNEUMONIA [None]
  - OROPHARYNGEAL PAIN [None]
  - RENAL FAILURE [None]
  - PYREXIA [None]
  - CONVULSION [None]
  - INCREASED UPPER AIRWAY SECRETION [None]
